FAERS Safety Report 11555570 (Version 2)
Quarter: 2015Q4

REPORT INFORMATION
  Report Type: Spontaneous
  Country: US (occurrence: None)
  Receive Date: 20150925
  Receipt Date: 20151113
  Transmission Date: 20160304
  Serious: No
  Sender: FDA-Public Use
  Company Number: US-MDT-ADR-2015-01844

PATIENT
  Age: 55 Year
  Sex: Male

DRUGS (2)
  1. BACLOFEN INTRATHECAL - 500 MCG/ML [Suspect]
     Active Substance: BACLOFEN
     Indication: SPINAL PAIN
     Dosage: ABOUT 60, 69.98 MCG/DAY
  2. MORPHINE INTRATHECAL - 10 MG/ML [Suspect]
     Active Substance: MORPHINE
     Dosage: ABOUT 1.2, 1.400 MG/DAY

REACTIONS (4)
  - Muscle spasms [None]
  - Pain [None]
  - Somnolence [None]
  - Asthenia [None]
